FAERS Safety Report 17436088 (Version 1)
Quarter: 2020Q1

REPORT INFORMATION
  Report Type: Spontaneous
  Country: US (occurrence: US)
  Receive Date: 20200219
  Receipt Date: 20200219
  Transmission Date: 20200409
  Serious: No
  Sender: FDA-Public Use
  Company Number: US-TEVA-2020-US-1188048

PATIENT

DRUGS (2)
  1. DOCETAXEL INJECTION [Suspect]
     Active Substance: DOCETAXEL
     Route: 065
     Dates: start: 20140605, end: 20141004
  2. TAXOTERE [Suspect]
     Active Substance: DOCETAXEL
     Route: 065
     Dates: start: 20140605, end: 20141004

REACTIONS (2)
  - Madarosis [Unknown]
  - Alopecia [Unknown]
